FAERS Safety Report 23676019 (Version 1)
Quarter: 2024Q1

REPORT INFORMATION
  Report Type: Other
  Country: CN (occurrence: None)
  Receive Date: 20240327
  Receipt Date: 20240327
  Transmission Date: 20240409
  Serious: Yes (Hospitalization)
  Sender: FDA-Public Use
  Company Number: CN-ROCHE-3531439

PATIENT

DRUGS (5)
  1. RITUXIMAB [Suspect]
     Active Substance: RITUXIMAB
     Indication: Non-Hodgkin^s lymphoma
     Route: 065
  2. RO-0622 [Concomitant]
     Active Substance: RO-0622
     Route: 048
  3. PERAMIVIR [Concomitant]
     Active Substance: PERAMIVIR
     Route: 042
  4. DEXAMETHASONE [Concomitant]
     Active Substance: DEXAMETHASONE
  5. CEFOTAXIME [Concomitant]
     Active Substance: CEFOTAXIME SODIUM

REACTIONS (1)
  - COVID-19 pneumonia [Recovered/Resolved]
